FAERS Safety Report 7215770-7 (Version None)
Quarter: 2011Q1

REPORT INFORMATION
  Report Type: 
  Country: None (occurrence: None)
  Receive Date: 20110107
  Receipt Date: 20101227
  Transmission Date: 20110831
  Serious: Yes (Hospitalization, Other)
  Sender: FDA-Public Use
  Company Number: JP-PFIZER INC-2008087413

PATIENT
  Age: 66 Year
  Sex: Male
  Weight: 71 kg

DRUGS (4)
  1. FLUOROURACIL [Concomitant]
     Indication: RECTAL CANCER
     Dosage: 300 MG/M2 (537 MG)
     Route: 040
     Dates: start: 20080917, end: 20080917
  2. CAMPTOSAR [Suspect]
     Indication: RECTAL CANCER
     Dosage: 150 MG/M2 (268.5 MG)
     Route: 041
     Dates: start: 20080917
  3. CALCIUM LEVOFOLINATE [Concomitant]
     Indication: RECTAL CANCER
     Dosage: 200 MG/M2 (358 MG)
     Route: 042
     Dates: start: 20080917, end: 20080917
  4. FLUOROURACIL [Concomitant]
     Dosage: 200 MG/M2 (3580 MG)
     Route: 041
     Dates: start: 20080917, end: 20080917

REACTIONS (5)
  - MELAENA [None]
  - LEUKOPENIA [None]
  - THROMBOCYTOPENIA [None]
  - NEUTROPENIA [None]
  - ENTEROCOLITIS HAEMORRHAGIC [None]
